FAERS Safety Report 9518251 (Version 1)
Quarter: 2013Q3

REPORT INFORMATION
  Report Type: Spontaneous
  Country: US (occurrence: None)
  Receive Date: 20130910
  Receipt Date: 20130910
  Transmission Date: 20140515
  Serious: No
  Sender: FDA-Public Use
  Company Number: None

PATIENT
  Age: 61 Year
  Sex: Male
  Weight: 79.38 kg

DRUGS (4)
  1. WARFARIN SODIUM [Suspect]
     Indication: THROMBOSIS
     Route: 048
     Dates: start: 2010, end: 20120830
  2. MULTIVITAMIN [Concomitant]
  3. FISH OIL [Concomitant]
  4. ASA [Concomitant]

REACTIONS (7)
  - Diplopia [None]
  - Asthenia [None]
  - Hypoaesthesia [None]
  - Speech disorder [None]
  - Headache [None]
  - Tooth loss [None]
  - Skin discolouration [None]
